FAERS Safety Report 8228511-1 (Version None)
Quarter: 2012Q1

REPORT INFORMATION
  Report Type: 
  Country: None (occurrence: None)
  Receive Date: 20120322
  Receipt Date: 20110719
  Transmission Date: 20120608
  Serious: Yes (Life-Threatening)
  Sender: FDA-Public Use
  Company Number: US-BRISTOL-MYERS SQUIBB COMPANY-15753593

PATIENT
  Age: 51 Year
  Sex: Male

DRUGS (5)
  1. BENADRYL [Concomitant]
  2. PERCOCET [Concomitant]
  3. NORVASC [Concomitant]
  4. ERBITUX [Suspect]
     Indication: COLON CANCER METASTATIC
     Dosage: 400MG/M2 ON DAY1 AND 250MG/M2 7DAYS
     Route: 042
     Dates: start: 20110506, end: 20110506
  5. DURAGESIC-100 [Concomitant]

REACTIONS (1)
  - ANAPHYLACTIC REACTION [None]
